FAERS Safety Report 14714890 (Version 1)
Quarter: 2018Q2

REPORT INFORMATION
  Report Type: Spontaneous
  Country: US (occurrence: US)
  Receive Date: 20180404
  Receipt Date: 20180404
  Transmission Date: 20180711
  Serious: Yes (Other)
  Sender: FDA-Public Use
  Company Number: US-PFIZER INC-2018136491

PATIENT
  Sex: Female

DRUGS (1)
  1. LYRICA [Suspect]
     Active Substance: PREGABALIN
     Dosage: 1 DF, ONCE A DAY, (TOOK ONLY 1 PILL YESTERDAY)

REACTIONS (6)
  - Lung neoplasm malignant [Unknown]
  - Panic reaction [Unknown]
  - Thinking abnormal [Unknown]
  - Feeling abnormal [Unknown]
  - Intentional product misuse [Unknown]
  - Nasopharyngitis [Unknown]
